APPROVED DRUG PRODUCT: DIMETHYL FUMARATE
Active Ingredient: DIMETHYL FUMARATE
Strength: 240MG
Dosage Form/Route: CAPSULE, DELAYED RELEASE;ORAL
Application: A210390 | Product #002
Applicant: TORRENT PHARMACEUTICALS LTD
Approved: Jan 6, 2025 | RLD: No | RS: No | Type: DISCN